FAERS Safety Report 8986266 (Version 1)
Quarter: 2012Q4

REPORT INFORMATION
  Report Type: Spontaneous
  Country: GB (occurrence: None)
  Receive Date: 20121217
  Receipt Date: 20121217
  Transmission Date: 20130627
  Serious: Yes (Death)
  Sender: FDA-Public Use
  Company Number: INT_00170_2012

PATIENT
  Age: 75 Year
  Sex: Male

DRUGS (41)
  1. MEROPENEM (MEROPENEM) [Suspect]
     Indication: URINARY TRACT INFECTION
     Dosage: (1 g QD
     Dates: start: 20121021, end: 20121125
  2. SIMVASTATIN (SIMVASTATIN) [Suspect]
     Indication: HYPERCHOLESTERAEMIA
     Route: 048
  3. AMLODIPINE [Concomitant]
  4. ASCORBIC ACID [Concomitant]
  5. CLARITHROMYCIN [Suspect]
  6. COLCHICINE [Concomitant]
  7. CYCLIZINE [Concomitant]
  8. DALTEPARIN [Concomitant]
  9. DARBEPOETIN ALFA [Concomitant]
  10. DOXAZOSIN [Concomitant]
  11. FINASTERIDE [Concomitant]
  12. FUROSEMIDE [Concomitant]
  13. INSULIN HUMAN [Suspect]
  14. INSULIN [Suspect]
  15. HYDROCORTISONE [Concomitant]
  16. HYOSCINE [Concomitant]
  17. HYDROCORTISONE [Concomitant]
  18. IPRATROPIUM [Concomitant]
  19. LACTULOSE [Concomitant]
  20. METOCLOPRAMIDE [Concomitant]
  21. MACROGOL 3350 [Concomitant]
  22. POLYETHYLENE GLYCOL [Concomitant]
  23. POTASSIUM CHLORIDE [Concomitant]
  24. SODIUM BICARBONATE [Concomitant]
  25. SODIUM CHLORIDE [Concomitant]
  26. NEFOPAM [Concomitant]
  27. NICORANDIL [Concomitant]
  28. OMEGA-3 FATTY ACIDS [Concomitant]
  29. PARACETAMOL [Concomitant]
  30. MAGESIUM OXIDE [Concomitant]
  31. SODIUM PICOSULFATE [Concomitant]
  32. RANITIDINE [Concomitant]
  33. SALBUTAMOL [Concomitant]
  34. SEVELAMER [Concomitant]
  35. DOCUSATE [Concomitant]
  36. TRIMETHOPRIM [Concomitant]
  37. NICOTINAMIDE [Concomitant]
  38. PYRIDOXAMINE HYDROCHLORIDE\THIAMINE HYDROCHLORIDE\CYANOCOBALAMIN [Concomitant]
  39. RIBOFLAVIN [Concomitant]
  40. THIAMIDE HYDROCHLORIDE [Suspect]
  41. ZOPICLONE [Concomitant]

REACTIONS (3)
  - Myopathy [None]
  - Myositis [None]
  - Drug interaction [None]
